FAERS Safety Report 10487394 (Version 3)
Quarter: 2014Q4

REPORT INFORMATION
  Report Type: Spontaneous
  Country: GB (occurrence: GB)
  Receive Date: 20141001
  Receipt Date: 20141016
  Transmission Date: 20150528
  Serious: Yes (Other)
  Sender: FDA-Public Use
  Company Number: GB-PFIZER INC-2014266211

PATIENT
  Age: 65 Year
  Sex: Female
  Weight: 65 kg

DRUGS (9)
  1. EPREX [Suspect]
     Active Substance: ERYTHROPOIETIN
     Dosage: TWICE WEEKLY
     Route: 042
     Dates: start: 20140131
  2. EPREX [Suspect]
     Active Substance: ERYTHROPOIETIN
     Dosage: 5000 IU, ONCE EVERY 2 WEEKS
     Dates: start: 201406, end: 201406
  3. EPREX [Suspect]
     Active Substance: ERYTHROPOIETIN
     Dosage: UNK
     Dates: start: 201405, end: 201405
  4. EPREX [Suspect]
     Active Substance: ERYTHROPOIETIN
     Dosage: UNK
     Dates: end: 201408
  5. EPREX [Suspect]
     Active Substance: ERYTHROPOIETIN
     Dosage: 2000 IU, WEEKLY
     Route: 042
     Dates: start: 20140113, end: 20140131
  6. LINEZOLID. [Suspect]
     Active Substance: LINEZOLID
     Dosage: UNK
     Dates: start: 20131220, end: 20140107
  7. EPREX [Suspect]
     Active Substance: ERYTHROPOIETIN
     Indication: NEPHROGENIC ANAEMIA
     Dosage: 4000 IU, 2X/WEEK
     Route: 042
     Dates: start: 20131006, end: 20140107
  8. EPREX [Suspect]
     Active Substance: ERYTHROPOIETIN
     Dosage: TWICE WEEKLY
     Route: 042
     Dates: end: 20140730
  9. EPREX [Suspect]
     Active Substance: ERYTHROPOIETIN
     Dosage: 6000 IU, ONCE EVERY 2 WEEKS
     Dates: start: 20140726

REACTIONS (11)
  - Colitis ulcerative [Unknown]
  - C-reactive protein abnormal [Unknown]
  - Aplasia pure red cell [Unknown]
  - Anti-erythropoietin antibody negative [Recovered/Resolved]
  - Limb operation [Unknown]
  - Platelet count decreased [Unknown]
  - Haemoglobin decreased [Recovering/Resolving]
  - Oxygen saturation decreased [Unknown]
  - Peripheral ischaemia [Unknown]
  - Drug ineffective [Unknown]
  - Sepsis [Unknown]

NARRATIVE: CASE EVENT DATE: 201310
